FAERS Safety Report 25024219 (Version 2)
Quarter: 2025Q2

REPORT INFORMATION
  Report Type: Report from Study
  Country: IT (occurrence: IT)
  Receive Date: 20250228
  Receipt Date: 20250524
  Transmission Date: 20250717
  Serious: Yes (Hospitalization)
  Sender: ABBVIE
  Company Number: IT-JNJFOC-20250252944

PATIENT
  Age: 77 Year
  Sex: Male
  Weight: 70 kg

DRUGS (1)
  1. IBRUTINIB [Suspect]
     Active Substance: IBRUTINIB
     Indication: Mantle cell lymphoma
     Dosage: STOP DATE - 28-DEC-2025 (CONFLICTINGLY REPORTED)
     Route: 048
     Dates: start: 20240516

REACTIONS (2)
  - Acute respiratory failure [Recovered/Resolved]
  - COVID-19 pneumonia [Recovered/Resolved]
